FAERS Safety Report 5327991-9 (Version None)
Quarter: 2007Q2

REPORT INFORMATION
  Report Type: 
  Country: None (occurrence: None)
  Receive Date: 20070517
  Receipt Date: 20070502
  Transmission Date: 20071010
  Serious: Yes (Hospitalization)
  Sender: FDA-Public Use
  Company Number: US-SHR-US-2007-011667

PATIENT
  Sex: Female

DRUGS (1)
  1. BETASERON [Suspect]
     Route: 058

REACTIONS (3)
  - DEPRESSION [None]
  - NAUSEA [None]
  - VOMITING [None]
